FAERS Safety Report 8588184 (Version 2)
Quarter: 2012Q4

REPORT INFORMATION
  Report Type: 
  Country: FR (occurrence: FR)
  Receive Date: 20120531
  Receipt Date: 20121004
  Transmission Date: 20130627
  Serious: Yes (Other)
  Sender: FDA-Public Use
  Company Number: FR-ROCHE-1072376

PATIENT
  Age: 49 Year
  Sex: Male

DRUGS (3)
  1. ZELBORAF [Suspect]
     Indication: METASTATIC MALIGNANT MELANOMA
     Route: 048
     Dates: start: 20120411, end: 20120620
  2. ZELBORAF [Suspect]
     Route: 048
  3. CO-RENITEC [Concomitant]
     Indication: HYPERTENSION

REACTIONS (1)
  - Hepatocellular injury [Recovered/Resolved]
